FAERS Safety Report 9330003 (Version 1)
Quarter: 2013Q2

REPORT INFORMATION
  Report Type: Spontaneous
  Country: US (occurrence: US)
  Receive Date: 20130604
  Receipt Date: 20130604
  Transmission Date: 20140414
  Serious: No
  Sender: FDA-Public Use
  Company Number: US-SANOFI-AVENTIS-2012SA056319

PATIENT
  Age: 68 Year
  Sex: Male
  Weight: 113.3 kg

DRUGS (12)
  1. LANTUS [Suspect]
     Indication: DIABETES MELLITUS
     Dosage: 13-22 UNITS DOSE:22 UNIT(S)
     Route: 058
  2. LANTUS [Suspect]
     Indication: DIABETES MELLITUS
     Dosage: DOSE:35 UNIT(S)
     Route: 058
  3. LANTUS [Suspect]
     Indication: DIABETES MELLITUS
     Dosage: DOSE:13 UNIT(S)
     Route: 058
  4. GLIMEPIRIDE [Concomitant]
     Indication: DIABETES MELLITUS
  5. PIOGLITAZONE HYDROCHLORIDE [Concomitant]
     Indication: DIABETES MELLITUS
  6. PIOGLITAZONE HYDROCHLORIDE [Concomitant]
     Indication: DIABETES MELLITUS
  7. AMLODIPINE [Concomitant]
     Indication: CARDIAC DISORDER
  8. TERAZOSIN [Concomitant]
     Indication: URINARY TRACT DISORDER
  9. FISH OIL [Concomitant]
     Indication: CARDIAC DISORDER
     Dosage: 2 GEL CAPSULES ONCE DAILY
  10. ASPIRIN [Concomitant]
     Indication: CARDIAC DISORDER
  11. HOMEOPATIC PREPARATION [Concomitant]
     Indication: THROMBOSIS PROPHYLAXIS
  12. SLO-NIACIN [Concomitant]
     Indication: BLOOD CHOLESTEROL DECREASED

REACTIONS (3)
  - Fatigue [Not Recovered/Not Resolved]
  - Blood glucose decreased [Unknown]
  - Drug ineffective [Unknown]
